FAERS Safety Report 5989019-7 (Version None)
Quarter: 2008Q4

REPORT INFORMATION
  Report Type: 
  Country: None (occurrence: None)
  Receive Date: 20081210
  Receipt Date: 20081126
  Transmission Date: 20090506
  Serious: Yes (Death, Congenital Anomaly)
  Sender: FDA-Public Use
  Company Number: B0539140A

PATIENT

DRUGS (5)
  1. LAMOTRIGINE [Suspect]
     Dosage: 100MG PER DAY
  2. ASPIRIN [Suspect]
     Indication: THROMBOCYTHAEMIA
  3. ACETAZOLAMIDE [Suspect]
  4. CARBAMAZEPINE [Suspect]
     Dosage: 400MG PER DAY
  5. HEPARIN [Suspect]

REACTIONS (5)
  - CARDIAC ANEURYSM [None]
  - CARDIAC TAMPONADE [None]
  - DRUG EXPOSURE DURING PREGNANCY [None]
  - INTRA-UTERINE DEATH [None]
  - PERICARDIAL HAEMORRHAGE [None]
